FAERS Safety Report 8337229-6 (Version None)
Quarter: 2012Q2

REPORT INFORMATION
  Report Type: 
  Country: None (occurrence: None)
  Receive Date: 20120504
  Receipt Date: 20120427
  Transmission Date: 20120825
  Serious: Yes (Hospitalization)
  Sender: FDA-Public Use
  Company Number: US-NOVOPROD-350568

PATIENT

DRUGS (2)
  1. NOVOLIN R [Suspect]
     Indication: DIABETES MELLITUS
     Route: 058
  2. NOVOLIN N [Suspect]
     Indication: DIABETES MELLITUS
     Route: 058

REACTIONS (1)
  - HOSPITALISATION [None]
